FAERS Safety Report 11774476 (Version 1)
Quarter: 2015Q4

REPORT INFORMATION
  Report Type: Spontaneous
  Country: LV (occurrence: LV)
  Receive Date: 20151124
  Receipt Date: 20151124
  Transmission Date: 20160304
  Serious: Yes (Hospitalization)
  Sender: FDA-Public Use
  Company Number: LV-B. BRAUN MEDICAL INC.-1044587

PATIENT
  Age: 12 Year
  Sex: Female
  Weight: 52 kg

DRUGS (4)
  1. DROTAVERINE [Concomitant]
     Active Substance: DROTAVERINE
     Route: 048
     Dates: start: 20151104
  2. RINGERS [Suspect]
     Active Substance: CALCIUM CHLORIDE\POTASSIUM CHLORIDE\SODIUM CHLORIDE
     Indication: FLUID REPLACEMENT
     Dates: start: 20151104
  3. OMEPRAZOLE. [Concomitant]
     Active Substance: OMEPRAZOLE
     Route: 048
     Dates: start: 20151104
  4. IBUPROFEN. [Concomitant]
     Active Substance: IBUPROFEN
     Route: 048
     Dates: start: 20151104

REACTIONS (6)
  - Hyperhidrosis [None]
  - Headache [None]
  - Chills [None]
  - Nausea [None]
  - Pallor [None]
  - Infusion site pain [None]
